FAERS Safety Report 4618298-3 (Version None)
Quarter: 2005Q1

REPORT INFORMATION
  Report Type: 
  Country: None (occurrence: None)
  Receive Date: 20050323
  Receipt Date: 20050307
  Transmission Date: 20050727
  Serious: Yes (Life-Threatening, Hospitalization)
  Sender: FDA-Public Use
  Company Number: DSA_26075_2005

PATIENT
  Age: 67 Year
  Sex: Female

DRUGS (8)
  1. ENALAPRIL [Suspect]
     Indication: CARDIOVASCULAR DISORDER
     Dosage: DF
  2. ENALAPRIL [Suspect]
     Indication: CARDIOVASCULAR DISORDER
     Dosage: DF
  3. BISOPROLOL FUMARATE [Suspect]
     Indication: CARDIOVASCULAR DISORDER
     Dosage: DF
  4. BISOPROLOL FUMARATE [Suspect]
     Indication: CARDIOVASCULAR DISORDER
     Dosage: DF
  5. BUMETANIDE [Suspect]
     Dosage: DF
  6. BUMETANIDE [Suspect]
     Indication: CARDIOVASCULAR DISORDER
     Dosage: DF
  7. ISOSORBIDE MONONITRATE [Suspect]
     Indication: CARDIOVASCULAR DISORDER
     Dosage: DF
  8. ISOSORBIDE MONONITRATE [Suspect]
     Indication: CARDIOVASCULAR DISORDER
     Dosage: DF

REACTIONS (9)
  - BLOOD PRESSURE IMMEASURABLE [None]
  - BRADYCARDIA [None]
  - COMA [None]
  - DIALYSIS [None]
  - DIARRHOEA [None]
  - ELECTROCARDIOGRAM QRS COMPLEX PROLONGED [None]
  - HYPERKALAEMIA [None]
  - RENAL FAILURE ACUTE [None]
  - SINOATRIAL BLOCK [None]
